FAERS Safety Report 7369083-3 (Version None)
Quarter: 2011Q1

REPORT INFORMATION
  Report Type: 
  Country: None (occurrence: None)
  Receive Date: 20110314
  Receipt Date: 20110304
  Transmission Date: 20110831
  Serious: Yes (Hospitalization, Other)
  Sender: FDA-Public Use
  Company Number: 2010SP006045

PATIENT
  Age: 24 Year
  Sex: Female
  Weight: 58.9676 kg

DRUGS (3)
  1. NUVARING [Suspect]
     Indication: CONTRACEPTION
     Dates: start: 20030922, end: 20060425
  2. VITAMINS NOS [Concomitant]
  3. ZOLOFT [Concomitant]

REACTIONS (11)
  - DYSMENORRHOEA [None]
  - BREAST CYST [None]
  - MULTIPLE INJURIES [None]
  - FACTOR V LEIDEN MUTATION [None]
  - VAGINAL DISCHARGE [None]
  - CONTUSION [None]
  - HUMAN PAPILLOMA VIRUS TEST POSITIVE [None]
  - DEEP VEIN THROMBOSIS [None]
  - THROMBOSIS [None]
  - HYPERCOAGULATION [None]
  - CERVICAL DYSPLASIA [None]
